FAERS Safety Report 10764516 (Version 2)
Quarter: 2018Q4

REPORT INFORMATION
  Report Type: Report from Study
  Country: US (occurrence: US)
  Receive Date: 20150205
  Receipt Date: 20181227
  Transmission Date: 20190204
  Serious: Yes (Death)
  Sender: FDA-Public Use
  Company Number: US-CIPLA LTD.-2015US00847

PATIENT

DRUGS (2)
  1. TOPOTECAN [Suspect]
     Active Substance: TOPOTECAN HYDROCHLORIDE
     Indication: CERVIX CARCINOMA RECURRENT
     Dosage: 0.6 MG/M2 ON DAYS 1 TO 5 OF EACH TREATMENT FOR EVERY 21 DAYS
     Route: 042
  2. VELIPARIB [Suspect]
     Active Substance: VELIPARIB
     Indication: CERVIX CARCINOMA RECURRENT
     Dosage: 10 MG, BID, ON DAYS 1 TO 5 OF EACH TREATMENT FOR EVERY 21 DAYS
     Route: 048

REACTIONS (1)
  - Sudden death [Fatal]
